FAERS Safety Report 9519216 (Version 1)
Quarter: 2013Q3

REPORT INFORMATION
  Report Type: Spontaneous
  Country: US (occurrence: None)
  Receive Date: 20130911
  Receipt Date: 20130911
  Transmission Date: 20140515
  Serious: Yes (Disabling, Other)
  Sender: FDA-Public Use
  Company Number: None

PATIENT
  Age: 55 None
  Sex: Female

DRUGS (12)
  1. TECFIDERA [Suspect]
     Route: 048
     Dates: start: 20130428
  2. NEURONTIN [Concomitant]
  3. BACLOFEN [Concomitant]
  4. LISINIPRIL [Concomitant]
  5. ASPIRIN [Concomitant]
  6. CYMBALTA [Concomitant]
  7. RITALIN [Concomitant]
  8. B12 [Concomitant]
  9. HYDROCORTISONE [Concomitant]
  10. SOLU-CORTEF [Concomitant]
  11. 2.5 MLS PRN [Concomitant]
  12. PREVACID [Concomitant]

REACTIONS (3)
  - Lymphocyte count decreased [None]
  - Pyrexia [None]
  - Anaemia [None]
